FAERS Safety Report 12180563 (Version 1)
Quarter: 2016Q1

REPORT INFORMATION
  Report Type: Spontaneous
  Country: ES (occurrence: ES)
  Receive Date: 20160315
  Receipt Date: 20160315
  Transmission Date: 20160526
  Serious: Yes (Death, Other)
  Sender: FDA-Public Use
  Company Number: ES-AMGEN-ESPSP2016029820

PATIENT
  Age: 59 Year
  Sex: Male

DRUGS (2)
  1. TEMOZOLOMIDE. [Concomitant]
     Active Substance: TEMOZOLOMIDE
  2. NPLATE [Suspect]
     Active Substance: ROMIPLOSTIM
     Indication: THROMBOCYTOPENIA
     Dosage: 2 MUG/KG, QWK
     Route: 065
     Dates: start: 201304

REACTIONS (5)
  - Cerebral haemorrhage [Unknown]
  - Thrombocytopenia [Unknown]
  - Death [Fatal]
  - Off label use [Unknown]
  - Glioblastoma [Unknown]

NARRATIVE: CASE EVENT DATE: 201410
